FAERS Safety Report 4313835-0 (Version None)
Quarter: 2004Q1

REPORT INFORMATION
  Report Type: 
  Country: None (occurrence: None)
  Receive Date: 20040308
  Receipt Date: 20040229
  Transmission Date: 20041129
  Serious: Yes (Hospitalization)
  Sender: FDA-Public Use
  Company Number: WAES 0403USA00038

PATIENT
  Age: 3 Year
  Sex: Male
  Weight: 16 kg

DRUGS (5)
  1. ANTIMICROBIAL (UNSPECIFIED) [Concomitant]
  2. ETOFYLLINE [Concomitant]
     Indication: ASTHMA
  3. FENADONE [Concomitant]
     Indication: ASTHMA
  4. SINGULAIR [Suspect]
     Indication: ASTHMA
     Route: 048
     Dates: start: 20040212, end: 20040220
  5. SINGULAIR [Suspect]
     Route: 048
     Dates: start: 20031201, end: 20031201

REACTIONS (2)
  - GLUCOSE-6-PHOSPHATE DEHYDROGENASE DEFICIENCY [None]
  - HAEMOLYSIS [None]
